FAERS Safety Report 18970735 (Version 1)
Quarter: 2021Q1

REPORT INFORMATION
  Report Type: Other
  Country: GB (occurrence: GB)
  Receive Date: 20210304
  Receipt Date: 20210304
  Transmission Date: 20210420
  Serious: Yes (Hospitalization)
  Sender: FDA-Public Use
  Company Number: GB-B.BRAUN MEDICAL INC.-2107593

PATIENT
  Age: 28 Year
  Sex: Female

DRUGS (1)
  1. ACETAMINOPHEN INJECTION 1,000 MG/100 ML (10 MG/ML) [Suspect]
     Active Substance: ACETAMINOPHEN
     Indication: OVERDOSE
     Route: 048

REACTIONS (1)
  - Hidradenitis [None]
